FAERS Safety Report 4571469-7 (Version None)
Quarter: 2005Q1

REPORT INFORMATION
  Report Type: 
  Country: None (occurrence: None)
  Receive Date: 20050203
  Receipt Date: 20050203
  Transmission Date: 20050727
  Serious: No
  Sender: FDA-Public Use
  Company Number: None

PATIENT
  Age: 40 Year
  Sex: Female
  Weight: 90.7194 kg

DRUGS (2)
  1. PROZAC [Suspect]
     Indication: DISEASE RECURRENCE
     Dosage: 60 MG/D
  2. PROZAC [Suspect]
     Indication: MAJOR DEPRESSION
     Dosage: 60 MG/D

REACTIONS (3)
  - CRYING [None]
  - DEPRESSION [None]
  - THERAPEUTIC PRODUCT INEFFECTIVE [None]
